FAERS Safety Report 6612868-9 (Version None)
Quarter: 2010Q1

REPORT INFORMATION
  Report Type: 
  Country: None (occurrence: None)
  Receive Date: 20100303
  Receipt Date: 20100226
  Transmission Date: 20100710
  Serious: Yes (Hospitalization, Other)
  Sender: FDA-Public Use
  Company Number: US-MERCK-0805USA00696

PATIENT
  Age: 50 Year
  Sex: Female

DRUGS (1)
  1. FOSAMAX [Suspect]
     Indication: OSTEOPOROSIS
     Route: 048
     Dates: start: 20010101, end: 20070101

REACTIONS (14)
  - BREAST CANCER FEMALE [None]
  - DEPRESSION [None]
  - EDENTULOUS [None]
  - INFLAMMATORY BOWEL DISEASE [None]
  - JOINT RANGE OF MOTION DECREASED [None]
  - MASTICATION DISORDER [None]
  - ORAL DISCOMFORT [None]
  - OSTEONECROSIS [None]
  - PNEUMONIA [None]
  - RHEUMATOID ARTHRITIS [None]
  - TEMPOROMANDIBULAR JOINT SYNDROME [None]
  - TOOTH DISORDER [None]
  - TRISMUS [None]
  - WEIGHT DECREASED [None]
